FAERS Safety Report 9774391 (Version 1)
Quarter: 2013Q4

REPORT INFORMATION
  Report Type: Spontaneous
  Country: US (occurrence: US)
  Receive Date: 20131220
  Receipt Date: 20131220
  Transmission Date: 20140711
  Serious: Yes (Other)
  Sender: FDA-Public Use
  Company Number: US-SA-2013SA132466

PATIENT
  Age: 62 Year
  Sex: Male

DRUGS (3)
  1. LANTUS SOLOSTAR [Suspect]
     Indication: TYPE 2 DIABETES MELLITUS
     Dosage: DOSE:30 UNIT(S)
     Route: 058
  2. LANTUS [Suspect]
     Route: 065
  3. SOLOSTAR [Concomitant]

REACTIONS (3)
  - Muscle rupture [Unknown]
  - Rotator cuff syndrome [Unknown]
  - Fall [Unknown]
